FAERS Safety Report 5602146-9 (Version None)
Quarter: 2008Q1

REPORT INFORMATION
  Report Type: 
  Country: None (occurrence: None)
  Receive Date: 20080125
  Receipt Date: 20080117
  Transmission Date: 20080703
  Serious: Yes (Hospitalization, Other)
  Sender: FDA-Public Use
  Company Number: PHBS2008PT01107

PATIENT
  Age: 38 Year
  Sex: Male

DRUGS (2)
  1. TEGRETOL [Suspect]
     Indication: EPILEPSY
     Dosage: 600 MG, BID
     Route: 048
  2. TEGRETOL [Suspect]
     Dosage: 600MG + 800MG
     Route: 048
     Dates: start: 20071101, end: 20071228

REACTIONS (3)
  - CONVULSION [None]
  - DIPLOPIA [None]
  - NYSTAGMUS [None]
